FAERS Safety Report 9436267 (Version 1)
Quarter: 2013Q3

REPORT INFORMATION
  Report Type: Report from Study
  Country: FR (occurrence: FR)
  Receive Date: 20130802
  Receipt Date: 20130802
  Transmission Date: 20140515
  Serious: Yes (Life-Threatening, Hospitalization, Other)
  Sender: FDA-Public Use
  Company Number: FR-009507513-1109FRA00021

PATIENT
  Age: 83 Year
  Sex: Male
  Weight: 71 kg

DRUGS (9)
  1. SITAGLIPTIN PHOSPHATE [Suspect]
     Indication: TYPE 2 DIABETES MELLITUS
     Dosage: 100 MG, QD
     Route: 048
     Dates: start: 20091207, end: 20110427
  2. SITAGLIPTIN PHOSPHATE [Suspect]
     Dosage: 100 MG, QD
     Route: 048
     Dates: start: 20120906
  3. DIAMICRON [Concomitant]
     Indication: TYPE 2 DIABETES MELLITUS
     Dosage: 30 MG, QD
     Route: 048
     Dates: end: 20110427
  4. STAGID [Concomitant]
     Indication: TYPE 2 DIABETES MELLITUS
     Dosage: 700 MG, QD
     Route: 048
     Dates: start: 20110308, end: 20110427
  5. PREVISCAN [Interacting]
     Indication: THROMBOSIS
     Dosage: 1 DF, QD
     Route: 048
     Dates: end: 20110427
  6. TRAMADOL HYDROCHLORIDE [Interacting]
     Indication: BACK PAIN
     Dosage: 3 DF, QD
     Dates: start: 20110409, end: 20110426
  7. FRACTAL [Suspect]
     Dosage: 40 MG, UNK
  8. JANUMET [Suspect]
     Indication: TYPE 2 DIABETES MELLITUS
     Dosage: 1 DF, UNK
     Route: 048
     Dates: start: 20111201, end: 20120906
  9. INSULIN [Suspect]
     Indication: TYPE 2 DIABETES MELLITUS

REACTIONS (6)
  - Cerebral haemorrhage [Recovered/Resolved]
  - Drug ineffective [Unknown]
  - Overdose [Recovered/Resolved]
  - Drug interaction [Recovered/Resolved]
  - International normalised ratio increased [Recovered/Resolved]
  - Back pain [Unknown]
